FAERS Safety Report 8923639 (Version 1)
Quarter: 2012Q4

REPORT INFORMATION
  Report Type: Spontaneous
  Country: US (occurrence: None)
  Receive Date: 20121109
  Receipt Date: 20121109
  Transmission Date: 20130627
  Serious: Yes (Hospitalization)
  Sender: FDA-Public Use
  Company Number: 2012S1000604

PATIENT
  Age: 40 Year
  Sex: Male
  Weight: 69 kg

DRUGS (6)
  1. CUBICIN [Suspect]
     Indication: CENTRAL LINE INFECTION
     Dosage: 5.79 MG/KG; QD ; IV
     Route: 042
     Dates: start: 20120706, end: 20120712
  2. DIAZEPAM [Concomitant]
  3. DIPHENOXYLATE [Concomitant]
  4. ATROPINE [Concomitant]
  5. FERROUS SULFATE [Concomitant]
  6. HEPARIN [Concomitant]

REACTIONS (4)
  - Muscle spasms [None]
  - Blood creatine phosphokinase increased [None]
  - Blood creatinine increased [None]
  - Renal failure acute [None]
